APPROVED DRUG PRODUCT: VICOPROFEN
Active Ingredient: HYDROCODONE BITARTRATE; IBUPROFEN
Strength: 7.5MG;200MG **Federal Register determination that product was not discontinued or withdrawn for safety or effectiveness reasons**
Dosage Form/Route: TABLET;ORAL
Application: N020716 | Product #001
Applicant: ABBVIE INC
Approved: Sep 23, 1997 | RLD: Yes | RS: No | Type: DISCN